FAERS Safety Report 5068314-2 (Version None)
Quarter: 2006Q3

REPORT INFORMATION
  Report Type: 
  Country: None (occurrence: None)
  Receive Date: 20060802
  Receipt Date: 20050729
  Transmission Date: 20061208
  Serious: No
  Sender: FDA-Public Use
  Company Number: US-BRISTOL-MYERS SQUIBB COMPANY-13056486

PATIENT
  Age: 81 Year
  Sex: Male
  Weight: 77 kg

DRUGS (9)
  1. COUMADIN [Suspect]
     Indication: ATRIAL FIBRILLATION
     Dates: start: 20020322
  2. CARTIA XT [Concomitant]
  3. COD LIVER OIL [Concomitant]
  4. DIGOXIN [Concomitant]
  5. HYTRIN [Concomitant]
  6. TETRACYCLINE [Concomitant]
     Indication: LIMB OPERATION
  7. TOPICAL STEROID CREAM [Concomitant]
     Route: 061
  8. VITAMINS [Concomitant]
  9. VALIUM [Concomitant]

REACTIONS (1)
  - INTERNATIONAL NORMALISED RATIO INCREASED [None]
